FAERS Safety Report 20147171 (Version 1)
Quarter: 2021Q4

REPORT INFORMATION
  Report Type: Spontaneous
  Country: US (occurrence: US)
  Receive Date: 20211203
  Receipt Date: 20211203
  Transmission Date: 20220303
  Serious: No
  Sender: FDA-Public Use
  Company Number: US-SA-SAC20211125000896

PATIENT
  Age: 62 Year
  Sex: Male

DRUGS (20)
  1. DUPIXENT [Suspect]
     Active Substance: DUPILUMAB
     Indication: Asthma
     Dosage: 600 MG, 1X
     Route: 058
     Dates: start: 20211104, end: 20211104
  2. ENALAPRIL [Concomitant]
     Active Substance: ENALAPRIL
  3. FARXIGA [Concomitant]
     Active Substance: DAPAGLIFLOZIN PROPANEDIOL
  4. FLUTICASONE [Concomitant]
     Active Substance: FLUTICASONE
  5. JANUVIA [Concomitant]
     Active Substance: SITAGLIPTIN PHOSPHATE
  6. LOSARTAN POTASSIUM [Concomitant]
     Active Substance: LOSARTAN POTASSIUM
  7. METFORMIN [Concomitant]
     Active Substance: METFORMIN HYDROCHLORIDE
  8. MONTELUKAST [Concomitant]
     Active Substance: MONTELUKAST SODIUM
  9. NYSTATIN [Concomitant]
     Active Substance: NYSTATIN
  10. OMEPRAZOLE [Concomitant]
     Active Substance: OMEPRAZOLE
  11. SIMVASTATIN [Concomitant]
     Active Substance: SIMVASTATIN
  12. SYMBICORT [Concomitant]
     Active Substance: BUDESONIDE\FORMOTEROL FUMARATE DIHYDRATE
  13. VICTOZA [Concomitant]
     Active Substance: LIRAGLUTIDE
  14. ATORVASTATIN [Concomitant]
     Active Substance: ATORVASTATIN
  15. HYDROCHLOROTHIAZIDE [Concomitant]
     Active Substance: HYDROCHLOROTHIAZIDE
  16. IPRATROPIUM [Concomitant]
     Active Substance: IPRATROPIUM
  17. PREDNISONE [Concomitant]
     Active Substance: PREDNISONE
  18. PREGABALIN [Concomitant]
     Active Substance: PREGABALIN
  19. PROAIR HFA [Concomitant]
     Active Substance: ALBUTEROL SULFATE
  20. SULFASALAZINE [Concomitant]
     Active Substance: SULFASALAZINE

REACTIONS (1)
  - Asthma [Unknown]

NARRATIVE: CASE EVENT DATE: 20211030
